FAERS Safety Report 20102507 (Version 1)
Quarter: 2021Q4

REPORT INFORMATION
  Report Type: Spontaneous
  Country: US (occurrence: None)
  Receive Date: 20211122
  Receipt Date: 20211122
  Transmission Date: 20220303
  Serious: Yes (Hospitalization)
  Sender: FDA-Public Use
  Company Number: None

PATIENT
  Age: 58 Year
  Sex: Male
  Weight: 69.8 kg

DRUGS (1)
  1. YESCARTA [Suspect]
     Active Substance: AXICABTAGENE CILOLEUCEL

REACTIONS (7)
  - Pyrexia [None]
  - Headache [None]
  - Myalgia [None]
  - Oxygen saturation decreased [None]
  - Hypotension [None]
  - C-reactive protein increased [None]
  - Serum ferritin increased [None]

NARRATIVE: CASE EVENT DATE: 20210905
